FAERS Safety Report 20766271 (Version 1)
Quarter: 2022Q2

REPORT INFORMATION
  Report Type: Spontaneous
  Country: US (occurrence: US)
  Receive Date: 20220428
  Receipt Date: 20220428
  Transmission Date: 20220721
  Serious: No
  Sender: FDA-Public Use
  Company Number: US-SEATTLE GENETICS-2022SGN02780

PATIENT
  Sex: Female

DRUGS (2)
  1. TUKYSA [Suspect]
     Active Substance: TUCATINIB
     Indication: Product used for unknown indication
     Route: 065
  2. CAPECITABINE [Suspect]
     Active Substance: CAPECITABINE
     Indication: Product used for unknown indication
     Route: 065

REACTIONS (1)
  - Oedema [Recovering/Resolving]

NARRATIVE: CASE EVENT DATE: 20220301
